FAERS Safety Report 12849223 (Version 3)
Quarter: 2017Q1

REPORT INFORMATION
  Report Type: Spontaneous
  Country: JP (occurrence: JP)
  Receive Date: 20161014
  Receipt Date: 20170109
  Transmission Date: 20170428
  Serious: Yes (Death, Other)
  Sender: FDA-Public Use
  Company Number: JP-BAXTER-2016BAX051929

PATIENT
  Age: 62 Year
  Sex: Female

DRUGS (2)
  1. DIANEAL [Suspect]
     Active Substance: CALCIUM CHLORIDE\DEXTROSE\MAGNESIUM CHLORIDE\SODIUM CHLORIDE\SODIUM LACTATE
     Indication: GLOMERULONEPHRITIS CHRONIC
     Route: 033
  2. EXTRANEAL [Suspect]
     Active Substance: CALCIUM CHLORIDE\ICODEXTRIN\MAGNESIUM CHLORIDE\SODIUM CHLORIDE\SODIUM LACTATE
     Indication: GLOMERULONEPHRITIS CHRONIC
     Route: 033

REACTIONS (5)
  - Encapsulating peritoneal sclerosis [Fatal]
  - Condition aggravated [Fatal]
  - Peritonitis [Unknown]
  - Ileus [Fatal]
  - General physical health deterioration [Fatal]
